FAERS Safety Report 6941998-7 (Version None)
Quarter: 2010Q3

REPORT INFORMATION
  Report Type: 
  Country: None (occurrence: None)
  Receive Date: 20100826
  Receipt Date: 20100824
  Transmission Date: 20110219
  Serious: Yes (Life-Threatening)
  Sender: FDA-Public Use
  Company Number: PHHY2010BR24339

PATIENT
  Sex: Female
  Weight: 62 kg

DRUGS (9)
  1. GALVUS MET [Suspect]
     Indication: DIABETES MELLITUS
     Dosage: 1 DF, BID (IN THE MORNING AND EVENING)
     Route: 048
     Dates: start: 20100413
  2. ENALAPRIL [Concomitant]
     Dosage: 10 MG
  3. ENALAPRIL [Concomitant]
     Dosage: 1 DF, BID (IN THE MORNING AND NIGHT)
     Route: 048
  4. ATENOLOL [Concomitant]
     Dosage: 1 DF, BID (IN THE MORNING AND EVENING)
     Route: 048
  5. MONOCORDIL [Concomitant]
     Dosage: 1 DF, BID (IN THE MORNING AND NIGHT)
     Route: 048
  6. HYDROCHLOROTHIAZIDE [Concomitant]
     Dosage: 1 TABLET (25 MG) DAILY
     Route: 048
  7. RANITIDINE [Concomitant]
     Indication: ABDOMINAL DISCOMFORT
     Dosage: 1 DF, BID (IN THE MORNING AND NIGHT)
     Route: 048
  8. ASPIRIN [Concomitant]
     Dosage: 1 TABLET (100 MG) DAILY
     Route: 048
  9. SIMVASTATIN [Concomitant]
     Dosage: 1 TABLET (20 MG) AT NIGHT
     Route: 048

REACTIONS (8)
  - ABDOMINAL PAIN UPPER [None]
  - ASTHENIA [None]
  - FATIGUE [None]
  - FEELING ABNORMAL [None]
  - FEELING COLD [None]
  - NAUSEA [None]
  - RETCHING [None]
  - SALIVARY HYPERSECRETION [None]
